FAERS Safety Report 5264994-7 (Version None)
Quarter: 2007Q1

REPORT INFORMATION
  Report Type: 
  Country: None (occurrence: None)
  Receive Date: 20070314
  Receipt Date: 20070306
  Transmission Date: 20070707
  Serious: Yes (Other)
  Sender: FDA-Public Use
  Company Number: GB-ROCHE-486848

PATIENT
  Age: 85 Year
  Sex: Female
  Weight: 83.4 kg

DRUGS (1)
  1. XENICAL [Suspect]
     Indication: OBESITY
     Route: 048
     Dates: start: 20060811

REACTIONS (1)
  - DEAFNESS UNILATERAL [None]
